FAERS Safety Report 7879288-0 (Version None)
Quarter: 2011Q4

REPORT INFORMATION
  Report Type: 
  Country: None (occurrence: None)
  Receive Date: 20111101
  Receipt Date: 20111021
  Transmission Date: 20120403
  Serious: Yes (Hospitalization, Other)
  Sender: FDA-Public Use
  Company Number: US-BAYER-2011-050421

PATIENT
  Age: 35 Year
  Sex: Female
  Weight: 78 kg

DRUGS (6)
  1. YAZ [Suspect]
     Indication: MENSTRUATION IRREGULAR
     Dosage: UNK
     Dates: start: 20070101, end: 20090101
  2. CALCIUM [Concomitant]
     Dosage: UNK
     Dates: start: 20081203
  3. FLAXSEED OIL [Concomitant]
  4. IBUPROFEN [Concomitant]
  5. YAZ [Suspect]
     Indication: MENORRHAGIA
  6. MULTIVITAMIN [Concomitant]
     Dosage: UNK
     Dates: start: 20081203

REACTIONS (3)
  - CHOLECYSTITIS CHRONIC [None]
  - PAIN [None]
  - GALLBLADDER DISORDER [None]
